FAERS Safety Report 15106510 (Version 1)
Quarter: 2018Q3

REPORT INFORMATION
  Report Type: Spontaneous
  Country: US (occurrence: US)
  Receive Date: 20180704
  Receipt Date: 20180704
  Transmission Date: 20181010
  Serious: No
  Sender: FDA-Public Use
  Company Number: US-SA-2018SA162715

PATIENT
  Sex: Male

DRUGS (1)
  1. LANTUS [Suspect]
     Active Substance: INSULIN GLARGINE
     Indication: DIABETES MELLITUS
     Dosage: 14 UNITS, QD
     Route: 065

REACTIONS (4)
  - Hyperhidrosis [Unknown]
  - Feeling abnormal [Unknown]
  - Device issue [Unknown]
  - Headache [Unknown]
